FAERS Safety Report 12314244 (Version 1)
Quarter: 2016Q2

REPORT INFORMATION
  Report Type: Spontaneous
  Country: US (occurrence: US)
  Receive Date: 20160428
  Receipt Date: 20160428
  Transmission Date: 20160815
  Serious: No
  Sender: FDA-Public Use
  Company Number: US-DRREDDYS-USA/USA/15/0053962

PATIENT
  Sex: Male
  Weight: 79.3 kg

DRUGS (1)
  1. ZIPRASIDONE 60 MG [Suspect]
     Active Substance: ZIPRASIDONE
     Indication: INSOMNIA
     Route: 048

REACTIONS (4)
  - Headache [Recovered/Resolved]
  - Drug ineffective [Unknown]
  - Product quality issue [Unknown]
  - Soliloquy [Recovered/Resolved]
